FAERS Safety Report 4455693-X (Version None)
Quarter: 2004Q3

REPORT INFORMATION
  Report Type: 
  Country: None (occurrence: None)
  Receive Date: 20040917
  Receipt Date: 20040827
  Transmission Date: 20050211
  Serious: Yes (Hospitalization)
  Sender: FDA-Public Use
  Company Number: USA040876877

PATIENT
  Age: 19 Year
  Sex: Male
  Weight: 77 kg

DRUGS (2)
  1. STRATTERA [Suspect]
     Indication: ATTENTION DEFICIT/HYPERACTIVITY DISORDER
     Dosage: 100 MG /1 DAY
     Dates: start: 20040101
  2. LEXAPRO (ESCITALOPRAM OXALATE0 [Concomitant]

REACTIONS (7)
  - DELUSION [None]
  - DRUG INEFFECTIVE [None]
  - IRRITABILITY [None]
  - PARANOIA [None]
  - PERSONALITY CHANGE [None]
  - SCRATCH [None]
  - SELF-INJURIOUS IDEATION [None]
